FAERS Safety Report 6091988-4 (Version None)
Quarter: 2009Q1

REPORT INFORMATION
  Report Type: 
  Country: None (occurrence: None)
  Receive Date: 20090225
  Receipt Date: 20081124
  Transmission Date: 20090719
  Serious: No
  Sender: FDA-Public Use
  Company Number: A0757858A

PATIENT
  Age: 45 Year
  Sex: Male

DRUGS (3)
  1. VALTREX [Suspect]
     Indication: GENITAL HERPES
     Dosage: 500MG PER DAY
     Route: 048
     Dates: start: 20080701
  2. PROPECIA [Suspect]
     Dosage: 1MG PER DAY
     Route: 048
     Dates: start: 20070101, end: 20081101
  3. MULTI-VITAMIN [Concomitant]

REACTIONS (2)
  - HYPOAESTHESIA [None]
  - PERIPHERAL COLDNESS [None]
